FAERS Safety Report 10014028 (Version 2)
Quarter: 2014Q2

REPORT INFORMATION
  Report Type: Spontaneous
  Country: DE (occurrence: DE)
  Receive Date: 20140317
  Receipt Date: 20140407
  Transmission Date: 20141212
  Serious: Yes (Hospitalization, Disabling)
  Sender: FDA-Public Use
  Company Number: DE-ROCHE-1365126

PATIENT
  Sex: Male
  Weight: 85 kg

DRUGS (3)
  1. PEGASYS [Suspect]
     Indication: HEPATITIS C
     Dosage: FREQUENCY: WEEKS
     Route: 065
     Dates: start: 20130711, end: 201312
  2. RIBAVIRIN [Suspect]
     Indication: HEPATITIS C
     Dosage: FREQUENCY: 3-0-2
     Route: 048
     Dates: start: 20130711, end: 201312
  3. TELAPREVIR [Suspect]
     Indication: HEPATITIS C
     Route: 048
     Dates: start: 20130711, end: 201312

REACTIONS (1)
  - Polyneuropathy [Unknown]
